FAERS Safety Report 7002626-8 (Version None)
Quarter: 2010Q3

REPORT INFORMATION
  Report Type: 
  Country: None (occurrence: None)
  Receive Date: 20100920
  Receipt Date: 20061102
  Transmission Date: 20110219
  Serious: Yes (Other)
  Sender: FDA-Public Use
  Company Number: US-ASTRAZENECA-2006UW25768

PATIENT
  Age: 50 Year
  Sex: Male
  Weight: 98.4 kg

DRUGS (22)
  1. SEROQUEL [Suspect]
     Indication: ANXIETY
     Dosage: 200 MG - 600 MG
     Route: 048
     Dates: start: 19970101, end: 20061201
  2. SEROQUEL [Suspect]
     Indication: DEPRESSION
     Dosage: 200 MG - 600 MG
     Route: 048
     Dates: start: 19970101, end: 20061201
  3. SEROQUEL [Suspect]
     Indication: BIPOLAR DISORDER
     Dosage: 200 MG - 600 MG
     Route: 048
     Dates: start: 19970101, end: 20061201
  4. SEROQUEL [Suspect]
     Indication: AFFECTIVE DISORDER
     Dosage: 200 MG - 600 MG
     Route: 048
     Dates: start: 19970101, end: 20061201
  5. SEROQUEL [Suspect]
     Dosage: 100 - 800 MG DAILY
     Route: 048
     Dates: start: 20020502
  6. SEROQUEL [Suspect]
     Dosage: 100 - 800 MG DAILY
     Route: 048
     Dates: start: 20020502
  7. SEROQUEL [Suspect]
     Dosage: 100 - 800 MG DAILY
     Route: 048
     Dates: start: 20020502
  8. SEROQUEL [Suspect]
     Dosage: 100 - 800 MG DAILY
     Route: 048
     Dates: start: 20020502
  9. RISPERDAL [Suspect]
     Dosage: STRENGTH - 1 - 3 MG
     Dates: start: 19970825
  10. VALIUM [Concomitant]
     Dates: start: 19970115
  11. LOTENSIN [Concomitant]
     Indication: HYPERTENSION
     Dates: start: 20030818
  12. LOTENSIN [Concomitant]
     Indication: RENAL IMPAIRMENT
     Dates: start: 20030818
  13. ZETIA [Concomitant]
     Indication: BLOOD CHOLESTEROL INCREASED
     Dates: start: 20040317
  14. CELEXA [Concomitant]
     Indication: DEPRESSION
     Dates: start: 20030716
  15. XANAX [Concomitant]
     Dosage: 2 - 9 MG PRN
     Dates: start: 20020530
  16. LEXAPRO [Concomitant]
     Dosage: 20 - 30 MG
     Dates: start: 20030819
  17. NORVASC [Concomitant]
     Indication: BLOOD PRESSURE
     Dates: start: 20030819
  18. KLONOPIN [Concomitant]
     Dates: start: 19970428
  19. PROMETHAZINE [Concomitant]
     Dates: start: 19970721
  20. LITHONATE [Concomitant]
     Dates: start: 19970531
  21. NEURONTIN [Concomitant]
     Dates: start: 19970531
  22. ATENOLOL [Concomitant]
     Dates: start: 20020516

REACTIONS (8)
  - DIABETES MELLITUS [None]
  - DIABETES MELLITUS INADEQUATE CONTROL [None]
  - DIABETIC COMA [None]
  - HYPERGLYCAEMIA [None]
  - TYPE 1 DIABETES MELLITUS [None]
  - TYPE 2 DIABETES MELLITUS [None]
  - VISION BLURRED [None]
  - WEIGHT INCREASED [None]
